FAERS Safety Report 9482235 (Version 1)
Quarter: 2013Q3

REPORT INFORMATION
  Report Type: Spontaneous
  Country: CH (occurrence: CH)
  Receive Date: 20130828
  Receipt Date: 20130828
  Transmission Date: 20140515
  Serious: Yes (Death, Other)
  Sender: FDA-Public Use
  Company Number: CH-JNJFOC-20130810585

PATIENT
  Sex: 0

DRUGS (1)
  1. ABCIXIMAB [Suspect]
     Indication: ANGIOPLASTY
     Route: 042

REACTIONS (4)
  - Cardiac death [Fatal]
  - Acute myocardial infarction [Unknown]
  - Coronary artery disease [Unknown]
  - Myocardial infarction [Unknown]
